FAERS Safety Report 4392257-0 (Version None)
Quarter: 2004Q3

REPORT INFORMATION
  Report Type: 
  Country: None (occurrence: None)
  Receive Date: 20040702
  Receipt Date: 20040223
  Transmission Date: 20050211
  Serious: Yes (Other)
  Sender: FDA-Public Use
  Company Number: 2004UW03172

PATIENT
  Age: 57 Year
  Sex: Male
  Weight: 117.9352 kg

DRUGS (5)
  1. CRESTOR [Suspect]
     Indication: BLOOD CHOLESTEROL INCREASED
     Dosage: 10 MG QD PO
     Route: 048
     Dates: start: 20040219
  2. NORVASC [Concomitant]
  3. ATROVENT [Concomitant]
  4. ALBUTEROL [Concomitant]
  5. NASACORT [Concomitant]

REACTIONS (3)
  - ABDOMINAL PAIN [None]
  - DIARRHOEA HAEMORRHAGIC [None]
  - FLATULENCE [None]
